FAERS Safety Report 10234747 (Version 1)
Quarter: 2014Q2

REPORT INFORMATION
  Report Type: Spontaneous
  Country: US (occurrence: US)
  Receive Date: 20140613
  Receipt Date: 20140613
  Transmission Date: 20141212
  Serious: No
  Sender: FDA-Public Use
  Company Number: US-SHIRE-US201402856

PATIENT
  Sex: Male

DRUGS (1)
  1. VYVANSE [Suspect]
     Indication: BRADYPHRENIA
     Dosage: 20 MG, UNKNOWN (WEEKDAYS AND NOT IN THE SUMMER)
     Route: 048

REACTIONS (3)
  - Therapeutic response changed [Unknown]
  - Decreased appetite [Unknown]
  - Off label use [Unknown]
